FAERS Safety Report 15292296 (Version 1)
Quarter: 2018Q3

REPORT INFORMATION
  Report Type: Spontaneous
  Country: IT (occurrence: IT)
  Receive Date: 20180818
  Receipt Date: 20180818
  Transmission Date: 20181010
  Serious: Yes (Hospitalization)
  Sender: FDA-Public Use
  Company Number: IT-AUROBINDO-AUR-APL-2017-15483

PATIENT
  Age: 37 Year
  Sex: Female

DRUGS (2)
  1. ASPIRINA [Suspect]
     Active Substance: ASPIRIN
     Indication: INFLUENZA
     Dosage: IN TOTAL
     Route: 048
     Dates: start: 20120423, end: 20120423
  2. PARACETAMOL [Suspect]
     Active Substance: ACETAMINOPHEN
     Indication: INFLUENZA
     Dosage: IN TOTAL
     Route: 048
     Dates: start: 20120423, end: 20120423

REACTIONS (3)
  - Rash [Recovered/Resolved]
  - Eyelid oedema [Recovered/Resolved]
  - Pruritus [Recovering/Resolving]

NARRATIVE: CASE EVENT DATE: 20120428
